FAERS Safety Report 5926050-1 (Version None)
Quarter: 2008Q4

REPORT INFORMATION
  Report Type: 
  Country: None (occurrence: None)
  Receive Date: 20081021
  Receipt Date: 20081008
  Transmission Date: 20090506
  Serious: Yes (Other)
  Sender: FDA-Public Use
  Company Number: IL-WATSON-2008-06024

PATIENT
  Age: 68 Year
  Sex: Female

DRUGS (1)
  1. FORTAMET [Suspect]
     Indication: DIABETES MELLITUS
     Dosage: 850 MG, TID
     Route: 048
     Dates: start: 20030101

REACTIONS (2)
  - HAEMOLYTIC ANAEMIA [None]
  - JAUNDICE [None]
